FAERS Safety Report 18548925 (Version 3)
Quarter: 2020Q4

REPORT INFORMATION
  Report Type: Spontaneous
  Country: PL (occurrence: PL)
  Receive Date: 20201125
  Receipt Date: 20201208
  Transmission Date: 20210114
  Serious: Yes (Other)
  Sender: FDA-Public Use
  Company Number: PL-JNJFOC-20201131083

PATIENT
  Age: 65 Year
  Sex: Male

DRUGS (6)
  1. IXEKIZUMAB [Suspect]
     Active Substance: IXEKIZUMAB
     Indication: PSORIASIS
     Route: 065
     Dates: start: 20190710
  2. METHOTREXATE. [Suspect]
     Active Substance: METHOTREXATE
     Route: 065
  3. REMICADE [Suspect]
     Active Substance: INFLIXIMAB
     Indication: PSORIASIS
     Dosage: DOSE: 5 MG PER KG BODY WEIGHT
     Route: 042
     Dates: start: 201803, end: 201906
  4. ACITRETIN. [Suspect]
     Active Substance: ACITRETIN
     Indication: PSORIASIS
     Dosage: DRUG START PERIOD?1 (YEARS)
     Route: 065
     Dates: start: 201311, end: 201404
  5. METHOTREXATE. [Suspect]
     Active Substance: METHOTREXATE
     Indication: PSORIASIS
     Dosage: DRUG START PERIOD?1 (YEARS)
     Route: 065
     Dates: start: 201311, end: 201404
  6. IXEKIZUMAB [Suspect]
     Active Substance: IXEKIZUMAB
     Dates: start: 201908

REACTIONS (14)
  - Tonsillar inflammation [Unknown]
  - Pulmonary fibrosis [Unknown]
  - Drug ineffective [Unknown]
  - Nail disorder [Unknown]
  - Tuberculin test positive [Unknown]
  - Prostate cancer [Unknown]
  - Hepatic steatosis [Unknown]
  - Hepatic cancer [Unknown]
  - Cholangiocarcinoma [Unknown]
  - Psoriasis [Unknown]
  - Splinter haemorrhages [Unknown]
  - Therapy non-responder [Unknown]
  - Onycholysis [Unknown]
  - Drug ineffective [Unknown]

NARRATIVE: CASE EVENT DATE: 2014
